FAERS Safety Report 23602569 (Version 4)
Quarter: 2024Q2

REPORT INFORMATION
  Report Type: Spontaneous
  Country: US (occurrence: US)
  Receive Date: 20240306
  Receipt Date: 20240522
  Transmission Date: 20240716
  Serious: No
  Sender: FDA-Public Use
  Company Number: US-Calliditas-2024CAL00319

PATIENT
  Age: 36 Year
  Sex: Male
  Weight: 91.8 kg

DRUGS (3)
  1. TARPEYO [Suspect]
     Active Substance: BUDESONIDE
     Indication: IgA nephropathy
     Dosage: 16MG (4MG CAPSULES) ONCE DAILY
     Route: 048
     Dates: start: 20240112
  2. FARXIGA [Concomitant]
     Active Substance: DAPAGLIFLOZIN PROPANEDIOL
  3. OMEGA SCIENCE OMEGA 3 CONCENTRATE [Concomitant]

REACTIONS (6)
  - Weight increased [Not Recovered/Not Resolved]
  - Fatigue [Not Recovered/Not Resolved]
  - Mood altered [Not Recovered/Not Resolved]
  - Emotional disorder [Not Recovered/Not Resolved]
  - Nausea [Unknown]
  - Alcohol intolerance [Unknown]

NARRATIVE: CASE EVENT DATE: 20240215
